FAERS Safety Report 7246241-X (Version None)
Quarter: 2011Q1

REPORT INFORMATION
  Report Type: 
  Country: None (occurrence: None)
  Receive Date: 20110126
  Receipt Date: 20110120
  Transmission Date: 20110831
  Serious: Yes (Other)
  Sender: FDA-Public Use
  Company Number: JP-PFIZER INC-2011013557

PATIENT
  Age: 59 Year
  Sex: Female

DRUGS (14)
  1. CRESTOR [Concomitant]
     Dosage: UNK
     Route: 048
  2. INSULIN [Concomitant]
  3. ATELEC [Concomitant]
     Dosage: UNK
     Route: 048
  4. ASPIRIN [Concomitant]
     Dosage: UNK
     Route: 048
  5. LYRICA [Suspect]
     Indication: NEURALGIA
     Dosage: 150 MG/DAY
     Route: 048
     Dates: start: 20101115, end: 20101213
  6. MICARDIS [Concomitant]
     Dosage: UNK
     Route: 048
  7. TORASEMIDE [Concomitant]
     Dosage: UNK
     Route: 048
  8. PLETAL [Concomitant]
     Dosage: UNK
     Route: 048
  9. MELBIN [Concomitant]
  10. HUMALOG MIX [Concomitant]
  11. NATRIX [Concomitant]
     Dosage: UNK
     Route: 048
  12. METHYCOBAL [Concomitant]
     Dosage: UNK
     Route: 048
  13. MEXITIL [Concomitant]
     Dosage: UNK
     Route: 048
  14. GASTER [Concomitant]
     Dosage: UNK
     Route: 048

REACTIONS (3)
  - OEDEMA PERIPHERAL [None]
  - BLOOD UREA INCREASED [None]
  - BLOOD CREATININE INCREASED [None]
